FAERS Safety Report 12969403 (Version 2)
Quarter: 2017Q1

REPORT INFORMATION
  Report Type: Spontaneous
  Country: US (occurrence: US)
  Receive Date: 20161123
  Receipt Date: 20170206
  Transmission Date: 20170428
  Serious: Yes (Hospitalization, Other)
  Sender: FDA-Public Use
  Company Number: US-PFIZER INC-2016545288

PATIENT
  Age: 67 Year
  Sex: Male
  Weight: 125.64 kg

DRUGS (16)
  1. TUDORZA PRESSAIR [Concomitant]
     Active Substance: ACLIDINIUM BROMIDE
     Dosage: 1 DF, 2X/DAY
  2. MUCINEX [Concomitant]
     Active Substance: GUAIFENESIN
     Dosage: 600 MG, 2X/DAY
     Route: 048
  3. NIASPAN ER [Concomitant]
     Active Substance: NIACIN
     Dosage: 1000 MG, DAILY
     Route: 048
  4. GABAPENTIN. [Suspect]
     Active Substance: GABAPENTIN
     Indication: DIABETIC NEUROPATHY
     Dosage: 400 MG, 3X/DAY
     Route: 048
     Dates: start: 2015
  5. DUONEB [Concomitant]
     Active Substance: ALBUTEROL SULFATE\IPRATROPIUM BROMIDE
     Indication: DYSPNOEA
     Dosage: 1 DF, AS NEEDED  (SALBUTAMOL SULFATE 0.5 MG]-[ IPRATROPIUM BROMIDE 2.5 MG] (PUFF 4 TIMES DAILY)
  6. LORATADINE. [Concomitant]
     Active Substance: LORATADINE
     Dosage: 10 MG, DAILY
     Route: 048
  7. ZESTRIL [Concomitant]
     Active Substance: LISINOPRIL
     Dosage: 2.5 MG, 1X/DAY
     Route: 048
  8. GABAPENTIN. [Suspect]
     Active Substance: GABAPENTIN
     Indication: PARAESTHESIA
  9. CELEXA [Concomitant]
     Active Substance: CITALOPRAM HYDROBROMIDE
     Dosage: 20 MG, 1X/DAY (EVERY EVENING)
     Route: 048
  10. SYMBICORT [Concomitant]
     Active Substance: BUDESONIDE\FORMOTEROL FUMARATE DIHYDRATE
     Dosage: 2 DF, 2X/DAY ([BUDESONIDE 160 MCG - FORMOTEROL 4.5 MCG] )
  11. NEURONTIN [Concomitant]
     Active Substance: GABAPENTIN
     Dosage: 400 MG, 3X/DAY
     Route: 048
  12. LANTUS [Concomitant]
     Active Substance: INSULIN GLARGINE
     Dosage: 50 IU/ML, 2X/DAY
     Route: 058
  13. GLUCOPHAGE [Concomitant]
     Active Substance: METFORMIN HYDROCHLORIDE
     Dosage: 1000 MG, 2X/DAY (DAILY)
     Route: 048
  14. GAS-X MAX STRENGTH [Concomitant]
     Dosage: 1 DF, UNK
     Route: 048
  15. FLONASE [Concomitant]
     Active Substance: FLUTICASONE PROPIONATE
     Dosage: 2 DF, 2X/DAY
  16. LASIX [Concomitant]
     Active Substance: FUROSEMIDE
     Dosage: 80 MG, DAILY (40 MG ORAL TABLET; 2 TABS BY MOUTH DAILY)
     Route: 048

REACTIONS (5)
  - Dyspnoea [Recovered/Resolved]
  - Loss of consciousness [Unknown]
  - Fall [Unknown]
  - Pneumonia [Recovered/Resolved]
  - Drug ineffective for unapproved indication [Recovered/Resolved]

NARRATIVE: CASE EVENT DATE: 2016
